FAERS Safety Report 21474277 (Version 1)
Quarter: 2022Q4

REPORT INFORMATION
  Report Type: Spontaneous
  Country: GB (occurrence: GB)
  Receive Date: 20221018
  Receipt Date: 20221018
  Transmission Date: 20230113
  Serious: Yes (Other)
  Sender: FDA-Public Use
  Company Number: GB-INCYTE CORPORATION-2022IN009111

PATIENT

DRUGS (1)
  1. PEMAZYRE [Suspect]
     Active Substance: PEMIGATINIB
     Indication: Cholangiocarcinoma
     Dosage: 13.5 MILLIGRAM, QD (FOR 14 DAYS OUT OF EVERY 21)
     Route: 048
     Dates: start: 20210427, end: 20211001

REACTIONS (9)
  - Metastatic neoplasm [Unknown]
  - Cholangiocarcinoma [Unknown]
  - Neck pain [Unknown]
  - Toxicity to various agents [Unknown]
  - Disease progression [Unknown]
  - Alopecia [Unknown]
  - Dry skin [Unknown]
  - Fatigue [Unknown]
  - Arthralgia [Unknown]
